FAERS Safety Report 17611400 (Version 1)
Quarter: 2020Q2

REPORT INFORMATION
  Report Type: Spontaneous
  Country: US (occurrence: US)
  Receive Date: 20200401
  Receipt Date: 20200401
  Transmission Date: 20200713
  Serious: No
  Sender: FDA-Public Use
  Company Number: None

PATIENT
  Age: 62 Year
  Sex: Male
  Weight: 81 kg

DRUGS (3)
  1. VENLAFAXINE HCL ER 75 MG AUROBINDO [Suspect]
     Active Substance: VENLAFAXINE HYDROCHLORIDE
     Indication: DEPRESSION
     Dosage: ?          QUANTITY:1 CAPSULE(S);?
     Dates: start: 20200316, end: 20200401
  2. CALCIUM / D3 [Concomitant]
  3. MULTIVITAMIN [Concomitant]
     Active Substance: VITAMINS

REACTIONS (4)
  - Insomnia [None]
  - Nervousness [None]
  - Sensory disturbance [None]
  - Tremor [None]

NARRATIVE: CASE EVENT DATE: 20200316
